FAERS Safety Report 24184126 (Version 2)
Quarter: 2025Q1

REPORT INFORMATION
  Report Type: Report from Study
  Country: CA (occurrence: CA)
  Receive Date: 20240807
  Receipt Date: 20250110
  Transmission Date: 20250409
  Serious: Yes (Hospitalization)
  Sender: ROCHE
  Company Number: CA-ROCHE-10000050251

PATIENT
  Age: 47 Year
  Sex: Male

DRUGS (4)
  1. OCREVUS [Suspect]
     Active Substance: OCRELIZUMAB
     Indication: Relapsing-remitting multiple sclerosis
     Dosage: 300 MG AT DAY 0 AND 14, THEN 600 MG EVERY 6 MONTH
     Route: 042
     Dates: start: 20180912
  2. CANDESARTAN [Concomitant]
     Active Substance: CANDESARTAN
  3. ALFUZOSIN [Concomitant]
     Active Substance: ALFUZOSIN
  4. CIALIS [Concomitant]
     Active Substance: TADALAFIL

REACTIONS (2)
  - Nasopharyngitis [Recovered/Resolved]
  - Ear infection [Recovered/Resolved]

NARRATIVE: CASE EVENT DATE: 20240722
